FAERS Safety Report 8717620 (Version 4)
Quarter: 2012Q4

REPORT INFORMATION
  Report Type: 
  Country: BR (occurrence: BR)
  Receive Date: 20120810
  Receipt Date: 20120829
  Transmission Date: 20130627
  Serious: Yes (Death)
  Sender: FDA-Public Use
  Company Number: BR-PFIZER INC-2012192980

PATIENT
  Age: 84 Year
  Sex: Female
  Weight: 49 kg

DRUGS (15)
  1. XALATAN [Suspect]
     Indication: GLAUCOMA
     Dosage: 3 ug, 1x/day (one drop each eye once a day)
     Route: 047
     Dates: start: 201205
  2. XALATAN [Suspect]
     Indication: MYOPIA
  3. XALATAN [Suspect]
     Indication: EYE DISORDER
  4. AZOPT [Suspect]
     Indication: GLAUCOMA
     Dosage: day and night
     Route: 047
     Dates: start: 201205
  5. AZOPT [Suspect]
     Indication: MYOPIA
  6. AZOPT [Suspect]
     Indication: EYE DISORDER
  7. LATANOPROST,TIMOLOL [Suspect]
     Indication: GLAUCOMA
     Dosage: UNK
     Dates: start: 20120306, end: 2012
  8. ANCORON [Concomitant]
     Indication: SPINAL PAIN
  9. ATORVASTATIN [Concomitant]
     Indication: SPINAL PAIN
  10. CENTRUM [Concomitant]
     Indication: DEHYDRATION
     Dosage: one tablet daily
     Dates: start: 2011
  11. TIMOLOL [Concomitant]
     Indication: HYPERTENSION
     Dosage: UNK
     Dates: start: 201205
  12. DIPIRONA [Concomitant]
     Indication: SPINAL PAIN
     Dosage: UNK
  13. DORFLEX [Concomitant]
     Indication: SPINAL PAIN
     Dosage: UNK
  14. NOVALGINA [Concomitant]
     Indication: SPINAL PAIN
     Dosage: UNK
  15. PLASIL [Concomitant]
     Indication: RETCHING
     Dosage: UNK

REACTIONS (3)
  - Infarction [Fatal]
  - Dysplasia [Fatal]
  - Vision blurred [Fatal]
